FAERS Safety Report 23779974 (Version 1)
Quarter: 2024Q2

REPORT INFORMATION
  Report Type: Spontaneous
  Country: US (occurrence: US)
  Receive Date: 20240424
  Receipt Date: 20240424
  Transmission Date: 20240715
  Serious: No
  Sender: FDA-Public Use
  Company Number: US-BRISTOL-MYERS SQUIBB COMPANY-2024-064174

PATIENT
  Age: 48 Year
  Sex: Female

DRUGS (1)
  1. LENALIDOMIDE [Suspect]
     Active Substance: LENALIDOMIDE
     Indication: Plasma cell myeloma
     Route: 048

REACTIONS (10)
  - Fatigue [Unknown]
  - Pain [Unknown]
  - Decreased appetite [Unknown]
  - Constipation [Unknown]
  - Pain in extremity [Unknown]
  - Swelling [Unknown]
  - Feeling abnormal [Unknown]
  - Eating disorder [Unknown]
  - Off label use [Unknown]
  - Gait disturbance [Unknown]
